FAERS Safety Report 18550633 (Version 2)
Quarter: 2021Q1

REPORT INFORMATION
  Report Type: Spontaneous
  Country: US (occurrence: US)
  Receive Date: 20201126
  Receipt Date: 20210121
  Transmission Date: 20210419
  Serious: No
  Sender: FDA-Public Use
  Company Number: US-PFIZER INC-2020464348

PATIENT
  Age: 56 Year
  Sex: Female

DRUGS (1)
  1. XELJANZ [Suspect]
     Active Substance: TOFACITINIB CITRATE
     Dosage: 5 MG
     Dates: start: 20201028

REACTIONS (6)
  - Peripheral swelling [Not Recovered/Not Resolved]
  - Loss of personal independence in daily activities [Unknown]
  - Osteoarthritis [Unknown]
  - Drug ineffective [Unknown]
  - Finger deformity [Unknown]
  - Pain in extremity [Not Recovered/Not Resolved]
